FAERS Safety Report 4993243-X (Version None)
Quarter: 2006Q1

REPORT INFORMATION
  Report Type: 
  Country: None (occurrence: None)
  Receive Date: 20060314
  Receipt Date: 20050214
  Transmission Date: 20060701
  Serious: Yes (Other)
  Sender: FDA-Public Use
  Company Number: 200510455BCC

PATIENT
  Age: 86 Year
  Sex: Female
  Weight: 63.5036 kg

DRUGS (7)
  1. ALEVE [Suspect]
     Indication: ARTHRALGIA
     Dosage: 880 MG, TOTAL DAILY, ORAL
     Route: 048
  2. ASPIRIN [Suspect]
     Indication: NERVOUSNESS
     Dosage: 500 MG, ONCE, ORAL
     Route: 048
     Dates: start: 20050111
  3. TOPROL-XL [Concomitant]
  4. SYNTHROID [Concomitant]
  5. MEDICATION FOR INCONTINENCE [Concomitant]
  6. ANACIN [Concomitant]
  7. HYZAAR [Concomitant]

REACTIONS (1)
  - HAEMATOCHEZIA [None]
